FAERS Safety Report 5918936-9 (Version None)
Quarter: 2008Q4

REPORT INFORMATION
  Report Type: 
  Country: None (occurrence: None)
  Receive Date: 20081015
  Receipt Date: 20081006
  Transmission Date: 20090506
  Serious: Yes (Hospitalization)
  Sender: FDA-Public Use
  Company Number: US-ROCHE-590118

PATIENT
  Sex: Male
  Weight: 87.1 kg

DRUGS (1)
  1. CAPECITABINE [Suspect]
     Dosage: DOSAGE REPORTED AS: 1000 MG AM AND 1500 MG PM
     Route: 048

REACTIONS (1)
  - GASTROINTESTINAL OBSTRUCTION [None]
